FAERS Safety Report 9040409 (Version 1)
Quarter: 2013Q1

REPORT INFORMATION
  Report Type: Report from Study
  Country: US (occurrence: US)
  Receive Date: 20130129
  Receipt Date: 20130129
  Transmission Date: 20140127
  Serious: No
  Sender: FDA-Public Use
  Company Number: US-ABBOTT-12P-163-0891323-00

PATIENT
  Age: 56 Year
  Sex: Female

DRUGS (7)
  1. HUMIRA 40 MG/0.8 ML PEN [Suspect]
  2. FLOVENT [Concomitant]
     Indication: ASTHMA
  3. ALBUTEROL [Concomitant]
     Indication: ASTHMA
  4. SIMVASTATIN [Concomitant]
     Indication: BLOOD CHOLESTEROL
  5. LEVOTHYROXINE [Concomitant]
     Indication: THYROID DISORDER
  6. PENTASA [Concomitant]
     Indication: CROHN^S DISEASE
  7. LEXAPRO [Concomitant]
     Indication: DEPRESSION

REACTIONS (1)
  - Nasopharyngitis [Not Recovered/Not Resolved]
